FAERS Safety Report 25127580 (Version 4)
Quarter: 2025Q4

REPORT INFORMATION
  Report Type: Report from Study
  Country: US (occurrence: US)
  Receive Date: 20250327
  Receipt Date: 20251008
  Transmission Date: 20260117
  Serious: Yes (Hospitalization)
  Sender: INSMED
  Company Number: US-INSMED, INC.-2025-00990-US

PATIENT
  Sex: Female

DRUGS (2)
  1. ARIKAYCE [Suspect]
     Active Substance: AMIKACIN
     Indication: Mycobacterium avium complex infection
     Dosage: 590 MILLIGRAM, TIW, MONDAY, WEDNESDAY AND FRIDAY
     Route: 055
     Dates: start: 202403
  2. ARIKAYCE [Suspect]
     Active Substance: AMIKACIN
     Indication: Lung disorder
     Dosage: 590 MILLIGRAM, TIW
     Route: 055
     Dates: end: 20250909

REACTIONS (4)
  - Hospitalisation [Unknown]
  - Hospitalisation [Unknown]
  - Therapy interrupted [Unknown]
  - Off label use [Unknown]
